FAERS Safety Report 5054356-X (Version None)
Quarter: 2006Q3

REPORT INFORMATION
  Report Type: 
  Country: None (occurrence: None)
  Receive Date: 20060718
  Receipt Date: 20060712
  Transmission Date: 20061208
  Serious: Yes (Hospitalization)
  Sender: FDA-Public Use
  Company Number: JP-BOEHRINGER INGELHEIM PHARMACEUTICALS, INC.-2006-BP-08064NB

PATIENT
  Age: 92 Year
  Sex: Female

DRUGS (9)
  1. SPIRIVA [Suspect]
     Indication: CHRONIC OBSTRUCTIVE PULMONARY DISEASE
     Route: 055
     Dates: start: 20060628
  2. ROCALTROL [Concomitant]
     Indication: MUSCULOSKELETAL PAIN
     Route: 048
     Dates: start: 20060708, end: 20060712
  3. JUVELA (TOCOPHEROL NICOTINATE) [Concomitant]
     Indication: MUSCULOSKELETAL PAIN
     Route: 048
     Dates: start: 20060712, end: 20060712
  4. CYANOCOBALAMIN [Concomitant]
     Indication: MUSCULOSKELETAL PAIN
     Route: 048
     Dates: start: 20060708, end: 20060712
  5. PREDNISOLONE [Concomitant]
     Indication: MUSCULOSKELETAL PAIN
     Route: 048
     Dates: start: 20060708, end: 20060712
  6. MEPTIN AIR (PROCATEROL HYDROCHLORIDE) [Concomitant]
     Route: 055
     Dates: start: 20060708, end: 20060712
  7. PARIET [Concomitant]
     Indication: MUSCULOSKELETAL PAIN
     Route: 048
     Dates: start: 20060625, end: 20060712
  8. SELBEX [Concomitant]
     Indication: MUSCULOSKELETAL PAIN
     Route: 048
     Dates: start: 20060625, end: 20060712
  9. THEO-DUR [Concomitant]
     Route: 048
     Dates: start: 20060701, end: 20060712

REACTIONS (1)
  - DRUG ERUPTION [None]
